FAERS Safety Report 9506013 (Version 1)
Quarter: 2013Q1

REPORT INFORMATION
  Report Type: Spontaneous
  Country: US (occurrence: None)
  Receive Date: 20130305
  Receipt Date: 20130305
  Transmission Date: 20140127
  Serious: No
  Sender: FDA-Public Use
  Company Number: 1000039782

PATIENT
  Age: 88 None
  Sex: Female

DRUGS (8)
  1. DALIRESP [Suspect]
     Indication: CHRONIC OBSTRUCTIVE PULMONARY DISEASE
     Route: 048
     Dates: start: 20121017, end: 20121017
  2. ZYRTEC(CETRIRIZINE HYDROCHLORIDE)(TABLETS(CETIRIZINE HYDROCHLORIDE) [Concomitant]
  3. LOVASTATIN(LOVASTATIN)(TABLETS)(LOVASTATIN) [Concomitant]
  4. LISINOPRIL(LISINOPRIL)(TABLETS)(LISINOPRIL) [Concomitant]
  5. OMEPRAZOLE(OMEPRAZOLE)(TABLETS)(OMEPRAZOLE) [Concomitant]
  6. ASPIRIN(ACETYLSALICYLIC ACID)(ACETYLSALICYLIC ACID) [Concomitant]
  7. VENTOLIN9ABLUTEROL)(ALBUTEROL) [Concomitant]
  8. IPRATROPIUM(IPRATROPIUM)(IPRATROPIUM) [Concomitant]

REACTIONS (3)
  - Nervousness [None]
  - Nausea [None]
  - Dizziness [None]
